FAERS Safety Report 21392494 (Version 1)
Quarter: 2022Q3

REPORT INFORMATION
  Report Type: Spontaneous
  Country: DE (occurrence: DE)
  Receive Date: 20220929
  Receipt Date: 20220929
  Transmission Date: 20221026
  Serious: Yes (Hospitalization)
  Sender: FDA-Public Use
  Company Number: DE-NOVARTISPH-NVSC2022DE215876

PATIENT
  Age: 81 Year
  Sex: Female
  Weight: 54 kg

DRUGS (11)
  1. SULFAMETHOXAZOLE\TRIMETHOPRIM [Suspect]
     Active Substance: SULFAMETHOXAZOLE\TRIMETHOPRIM
     Indication: Product used for unknown indication
     Dosage: UNK, (DOSE: 800|160 MG)
     Route: 048
  2. ROSUVASTATIN [Concomitant]
     Active Substance: ROSUVASTATIN
     Indication: Product used for unknown indication
     Dosage: 10 MG, QD (0-0-1-0)
     Route: 048
  3. FOLIC ACID [Concomitant]
     Active Substance: FOLIC ACID
     Indication: Product used for unknown indication
     Dosage: 5 MG, QD (1-0-0-0)
     Route: 048
  4. MIRTAZAPINE [Concomitant]
     Active Substance: MIRTAZAPINE
     Indication: Product used for unknown indication
     Dosage: 30 MG (0-0-0.5-0 )
     Route: 048
  5. FLUTICASONE [Concomitant]
     Active Substance: FLUTICASONE
     Indication: Product used for unknown indication
     Dosage: UNK, BID (1-0-1-0)
  6. RAMIPRIL [Concomitant]
     Active Substance: RAMIPRIL
     Indication: Product used for unknown indication
     Dosage: 5 MG, QD (1-0-0-0)
     Route: 048
  7. ESCITALOPRAM [Concomitant]
     Active Substance: ESCITALOPRAM OXALATE
     Indication: Product used for unknown indication
     Dosage: 5 MG, QD (1-0-0-0)
     Route: 048
  8. RISEDRONIC ACID [Concomitant]
     Active Substance: RISEDRONIC ACID
     Indication: Product used for unknown indication
     Dosage: 35 MG (MONTAGS EINE)
     Route: 048
  9. ZOPICLONE [Concomitant]
     Active Substance: ZOPICLONE
     Indication: Product used for unknown indication
     Dosage: 7.5 MG, QD (0-0-1-0)
     Route: 048
  10. VITAMIN B12 DEPOT HEVERT [Concomitant]
     Indication: Product used for unknown indication
     Dosage: UNK
     Route: 048
  11. METAMIZOLE [Concomitant]
     Active Substance: METAMIZOLE
     Indication: Product used for unknown indication
     Dosage: 500 MG (DREIMAL EINE TABLETTE BEI BEDARF BIS ZU ACHT TABLETTEN PRO TAG)
     Route: 048

REACTIONS (7)
  - Dyspnoea [Unknown]
  - Rash pruritic [Unknown]
  - Rash papular [Unknown]
  - Rash erythematous [Unknown]
  - Erythema [Unknown]
  - Diarrhoea [Unknown]
  - Medication error [Unknown]

NARRATIVE: CASE EVENT DATE: 20211020
